FAERS Safety Report 11916579 (Version 1)
Quarter: 2016Q1

REPORT INFORMATION
  Report Type: Spontaneous
  Country: FR (occurrence: FR)
  Receive Date: 20160114
  Receipt Date: 20160114
  Transmission Date: 20160526
  Serious: Yes (Hospitalization)
  Sender: FDA-Public Use
  Company Number: FR-JNJFOC-20160108369

PATIENT
  Age: 77 Year
  Sex: Male

DRUGS (10)
  1. AMLOR [Suspect]
     Active Substance: AMLODIPINE BESYLATE
     Indication: PRODUCT USED FOR UNKNOWN INDICATION
     Route: 065
  2. CORDARONE [Suspect]
     Active Substance: AMIODARONE HYDROCHLORIDE
     Indication: ARRHYTHMIA
     Route: 065
     Dates: start: 20151009
  3. IXPRIM [Concomitant]
     Active Substance: ACETAMINOPHEN\TRAMADOL HYDROCHLORIDE
     Route: 065
  4. ZYLORIC [Concomitant]
     Active Substance: ALLOPURINOL
     Route: 065
  5. ATENOLOL. [Concomitant]
     Active Substance: ATENOLOL
     Route: 065
  6. XARELTO [Suspect]
     Active Substance: RIVAROXABAN
     Indication: CEREBROVASCULAR ACCIDENT PROPHYLAXIS
     Route: 048
     Dates: start: 20151009
  7. XARELTO [Suspect]
     Active Substance: RIVAROXABAN
     Indication: ATRIAL FIBRILLATION
     Route: 048
     Dates: start: 20151009
  8. INEXIUM [Suspect]
     Active Substance: ESOMEPRAZOLE
     Indication: ULCER
     Route: 065
  9. XATRAL [Concomitant]
     Active Substance: ALFUZOSIN
     Route: 065
  10. CORTANCYL [Concomitant]
     Active Substance: PREDNISONE
     Route: 065

REACTIONS (1)
  - Pemphigoid [Unknown]

NARRATIVE: CASE EVENT DATE: 20151127
